FAERS Safety Report 5306556-9 (Version None)
Quarter: 2007Q2

REPORT INFORMATION
  Report Type: 
  Country: None (occurrence: None)
  Receive Date: 20070424
  Receipt Date: 20070412
  Transmission Date: 20071010
  Serious: Yes (Other)
  Sender: FDA-Public Use
  Company Number: AT-PFIZER INC-2007027107

PATIENT
  Sex: Male
  Weight: 92 kg

DRUGS (1)
  1. CHAMPIX [Suspect]
     Indication: EX-SMOKER
     Dosage: FREQ:EVERY DAY
     Route: 048
     Dates: start: 20070301, end: 20070301

REACTIONS (1)
  - DERMATITIS BULLOUS [None]
